FAERS Safety Report 7372617-6 (Version None)
Quarter: 2011Q1

REPORT INFORMATION
  Report Type: 
  Country: None (occurrence: None)
  Receive Date: 20110324
  Receipt Date: 20110315
  Transmission Date: 20110831
  Serious: Yes (Hospitalization)
  Sender: FDA-Public Use
  Company Number: US-ASTRAZENECA-2011SE02360

PATIENT
  Age: 58 Year
  Sex: Female

DRUGS (3)
  1. SYMBICORT [Suspect]
     Indication: ASTHMA
     Route: 055
  2. SYMBICORT [Suspect]
     Dosage: 160/4.5 MCG TWO PUFFS BID
     Route: 055
  3. NEXIUM [Suspect]
     Route: 048

REACTIONS (4)
  - ASTHMA [None]
  - GASTRIC BYPASS [None]
  - MEMORY IMPAIRMENT [None]
  - DRUG INEFFECTIVE [None]
